FAERS Safety Report 4715514-4 (Version None)
Quarter: 2005Q3

REPORT INFORMATION
  Report Type: 
  Country: None (occurrence: None)
  Receive Date: 20050715
  Receipt Date: 20050715
  Transmission Date: 20060218
  Serious: No
  Sender: FDA-Public Use
  Company Number: None

PATIENT

DRUGS (1)
  1. COPPERTONE SPF30, SUNBLOCK [Suspect]
     Dates: start: 20050609, end: 20050609

REACTIONS (3)
  - SKIN DISCOLOURATION [None]
  - SKIN NECROSIS [None]
  - SUNBURN [None]
